FAERS Safety Report 21798091 (Version 3)
Quarter: 2023Q1

REPORT INFORMATION
  Report Type: Spontaneous
  Country: ES (occurrence: ES)
  Receive Date: 20221230
  Receipt Date: 20230103
  Transmission Date: 20230418
  Serious: Yes (Other)
  Sender: FDA-Public Use
  Company Number: ES-009507513-2212ESP010140

PATIENT
  Age: 59 Year

DRUGS (7)
  1. PEMBROLIZUMAB [Suspect]
     Active Substance: PEMBROLIZUMAB
     Indication: Squamous cell carcinoma of the oral cavity
     Dosage: UNK
  2. PEMBROLIZUMAB [Suspect]
     Active Substance: PEMBROLIZUMAB
     Dosage: 200 MILLIGRAM, Q3W
     Route: 042
  3. CARBOPLATIN [Suspect]
     Active Substance: CARBOPLATIN
     Indication: Squamous cell carcinoma of the oral cavity
     Dosage: INITIAL DOSE 400 MG/DAY, Q3W
  4. PACLITAXEL [Suspect]
     Active Substance: PACLITAXEL
     Indication: Squamous cell carcinoma of the oral cavity
     Dosage: INITIAL AND MEAN DOSE 150 MILLIGRAM/SQ. METER, Q3W
  5. NIVOLUMAB [Concomitant]
     Active Substance: NIVOLUMAB
     Indication: Squamous cell carcinoma of the oral cavity
     Dosage: UNK
  6. CETUXIMAB [Concomitant]
     Active Substance: CETUXIMAB
     Indication: Squamous cell carcinoma of the oral cavity
     Dosage: UNK
  7. CARBOPLATIN\PACLITAXEL [Concomitant]
     Active Substance: CARBOPLATIN\PACLITAXEL
     Dosage: UNK UNK, QW

REACTIONS (5)
  - Neuropathy peripheral [Unknown]
  - Asthenia [Unknown]
  - Decreased appetite [Unknown]
  - Alopecia [Unknown]
  - Off label use [Unknown]
